FAERS Safety Report 6269536-5 (Version None)
Quarter: 2009Q3

REPORT INFORMATION
  Report Type: 
  Country: None (occurrence: None)
  Receive Date: 20090715
  Receipt Date: 20090616
  Transmission Date: 20100115
  Serious: No
  Sender: FDA-Public Use
  Company Number: US-TYCO HEALTHCARE/MALLINCKRODT-T200901213

PATIENT
  Sex: Male
  Weight: 68.027 kg

DRUGS (3)
  1. OXYCODONE HCL [Suspect]
     Indication: PAIN
     Dosage: 15 MG, TID
     Route: 048
     Dates: start: 20090609, end: 20090612
  2. OXYCODONE HCL [Suspect]
     Dosage: 15 MG, TID
     Route: 048
  3. SOMA [Concomitant]
     Indication: PAIN
     Dosage: UNK

REACTIONS (5)
  - DRUG INEFFECTIVE [None]
  - INCORRECT DOSE ADMINISTERED [None]
  - INFLUENZA LIKE ILLNESS [None]
  - NAUSEA [None]
  - VOMITING [None]
